FAERS Safety Report 5223672-0 (Version None)
Quarter: 2007Q1

REPORT INFORMATION
  Report Type: 
  Country: None (occurrence: None)
  Receive Date: 20070125
  Receipt Date: 20070117
  Transmission Date: 20070707
  Serious: Yes (Hospitalization, Other)
  Sender: FDA-Public Use
  Company Number: FRWYE206117JAN07

PATIENT
  Age: 8 Year
  Sex: Male

DRUGS (1)
  1. ADVIL [Suspect]
     Indication: TOOTHACHE
     Dosage: 100 MG 1X PER 1 DAY
     Route: 048
     Dates: start: 20061205, end: 20061205

REACTIONS (6)
  - CONFUSIONAL STATE [None]
  - CONVULSION [None]
  - DYSKINESIA [None]
  - ELECTROENCEPHALOGRAM ABNORMAL [None]
  - LOSS OF CONSCIOUSNESS [None]
  - SPEECH DISORDER [None]
